FAERS Safety Report 9338109 (Version 2)
Quarter: 2014Q1

REPORT INFORMATION
  Report Type: Spontaneous
  Country: IT (occurrence: IT)
  Receive Date: 20130610
  Receipt Date: 20140328
  Transmission Date: 20141002
  Serious: Yes (Hospitalization)
  Sender: FDA-Public Use
  Company Number: IT-ROCHE-1234221

PATIENT
  Age: 82 Year
  Sex: Male
  Weight: 69 kg

DRUGS (3)
  1. AVASTIN [Suspect]
     Indication: COLON CANCER
     Route: 042
     Dates: start: 20120116, end: 20120116
  2. XELODA [Suspect]
     Indication: PRODUCT USED FOR UNKNOWN INDICATION
     Route: 048
     Dates: start: 20120116, end: 20120201
  3. OXALIPLATIN HOSPIRA [Suspect]
     Indication: PRODUCT USED FOR UNKNOWN INDICATION
     Route: 042
     Dates: start: 20120116, end: 20120116

REACTIONS (2)
  - Gastrointestinal toxicity [Recovering/Resolving]
  - Haematotoxicity [Recovering/Resolving]
